FAERS Safety Report 9490154 (Version 2)
Quarter: 2013Q3

REPORT INFORMATION
  Report Type: Spontaneous
  Country: US (occurrence: US)
  Receive Date: 20130830
  Receipt Date: 20130924
  Transmission Date: 20140515
  Serious: Yes (Other)
  Sender: FDA-Public Use
  Company Number: US-AMGEN-USASP2013060015

PATIENT
  Age: 63 Year
  Sex: Female

DRUGS (2)
  1. PROLIA [Suspect]
     Indication: OSTEOPOROSIS
     Dosage: UNK
     Route: 065
     Dates: start: 20120711
  2. CALCIUM WITH VITAMIN D             /00944201/ [Concomitant]
     Route: 065

REACTIONS (3)
  - Tooth abscess [Unknown]
  - Tooth disorder [Unknown]
  - Toothache [Unknown]
